FAERS Safety Report 8825176 (Version 2)
Quarter: 2012Q4

REPORT INFORMATION
  Report Type: 
  Country: US (occurrence: US)
  Receive Date: 20121004
  Receipt Date: 20121026
  Transmission Date: 20130627
  Serious: Yes (Death)
  Sender: FDA-Public Use
  Company Number: US-GLAXOSMITHKLINE-A0996143A

PATIENT
  Age: 84 Year
  Sex: Female
  Weight: 82.5 kg

DRUGS (1)
  1. PROMACTA [Suspect]
     Indication: IDIOPATHIC THROMBOCYTOPENIC PURPURA
     Dosage: 50MG Per day
     Route: 048
     Dates: start: 20090804, end: 20120728

REACTIONS (1)
  - Death [Fatal]
